FAERS Safety Report 9810346 (Version 2)
Quarter: 2016Q2

REPORT INFORMATION
  Report Type: Spontaneous
  Country: US (occurrence: US)
  Receive Date: 20140110
  Receipt Date: 20160510
  Transmission Date: 20160815
  Serious: Yes (Death, Other)
  Sender: FDA-Public Use
  Company Number: US-SA-2013SA113767

PATIENT
  Age: 68 Year

DRUGS (2)
  1. PLAVIX [Suspect]
     Active Substance: CLOPIDOGREL BISULFATE
     Indication: STENT PLACEMENT
     Route: 065
     Dates: start: 20090216, end: 20090505
  2. ASPIRIN. [Suspect]
     Active Substance: ASPIRIN
     Route: 065
     Dates: start: 20090402

REACTIONS (3)
  - Cerebral haemorrhage [Unknown]
  - Death [Fatal]
  - Myocardial infarction [Unknown]

NARRATIVE: CASE EVENT DATE: 20090505
